FAERS Safety Report 16834273 (Version 3)
Quarter: 2019Q4

REPORT INFORMATION
  Report Type: Spontaneous
  Country: US (occurrence: US)
  Receive Date: 20190920
  Receipt Date: 20191202
  Transmission Date: 20200122
  Serious: Yes (Other)
  Sender: FDA-Public Use
  Company Number: US-PFIZER INC-2019401940

PATIENT
  Age: 59 Year
  Sex: Female
  Weight: 63.49 kg

DRUGS (12)
  1. EXEMESTANE. [Concomitant]
     Active Substance: EXEMESTANE
     Dosage: 25 MG, UNK
  2. CALCIUM [Concomitant]
     Active Substance: CALCIUM
     Dosage: UNK (500(1250) TABLET)
  3. GLUCOSAMINE [Concomitant]
     Active Substance: GLUCOSAMINE
     Dosage: UNK
  4. ASPRIN [Concomitant]
     Active Substance: ASPIRIN
     Dosage: 81 MG, 1X/DAY
  5. MONTELUKAST [Concomitant]
     Active Substance: MONTELUKAST SODIUM
     Dosage: UNK UNK, 1X/DAY (AT HS (AT BEDTIME))
  6. OLOPATADINE [OLOPATADINE HYDROCHLORIDE] [Concomitant]
     Dosage: UNK, DAILY PRN (AS NEEDED))
  7. IBRANCE [Suspect]
     Active Substance: PALBOCICLIB
     Dosage: UNK, 2X/DAY (AS PRESCRIBED TWICE A DAY) 3 MONTHS
  8. TURMERIC [CURCUMA LONGA] [Concomitant]
     Active Substance: HERBALS\TURMERIC
     Dosage: 400 MG, UNK
  9. FISH OIL [COD-LIVER OIL] [Concomitant]
     Dosage: UNK UNK, 2X/DAY
  10. IBRANCE [Suspect]
     Active Substance: PALBOCICLIB
     Indication: BREAST CANCER METASTATIC
     Dosage: 125 MG, CYCLIC (DAILY FOR 21 OUT OF 28 DAY)
     Route: 048
     Dates: start: 20190611, end: 20190918
  11. CHONDROITIN [Concomitant]
     Active Substance: CHONDROITIN
     Dosage: UNK
  12. NASACORT [Concomitant]
     Active Substance: TRIAMCINOLONE ACETONIDE
     Dosage: AM  (IN MORNING)-2 SPRAYS

REACTIONS (3)
  - Diarrhoea [Recovering/Resolving]
  - Anal incontinence [Recovered/Resolved]
  - Neuropathy peripheral [Recovering/Resolving]

NARRATIVE: CASE EVENT DATE: 2019
